FAERS Safety Report 7794746-5 (Version None)
Quarter: 2011Q3

REPORT INFORMATION
  Report Type: 
  Country: None (occurrence: None)
  Receive Date: 20110929
  Receipt Date: 20110921
  Transmission Date: 20111222
  Serious: Yes (Hospitalization)
  Sender: FDA-Public Use
  Company Number: 2011SP042506

PATIENT
  Age: 66 Year
  Sex: Female
  Weight: 94 kg

DRUGS (6)
  1. INTERFERON [Suspect]
     Indication: HEPATITIS C
  2. COLCHICINE [Concomitant]
  3. BOCEPREVIR (SCH-503034) [Suspect]
     Indication: HEPATITIS C
     Dosage: 800 MG;TID;PO
     Route: 048
     Dates: start: 20110421, end: 20110808
  4. LEVOTHYROXINE SODIUM [Concomitant]
  5. RIBAVIRIN [Suspect]
     Indication: HEPATITIS C
  6. PROPRANOLOL [Concomitant]

REACTIONS (8)
  - HEPATIC CIRRHOSIS [None]
  - CARDIOMEGALY [None]
  - SPLENIC INFARCTION [None]
  - GENERAL PHYSICAL HEALTH DETERIORATION [None]
  - PLEURAL EFFUSION [None]
  - PROTHROMBIN TIME PROLONGED [None]
  - UTERINE LEIOMYOMA [None]
  - PLEURAL INFECTION [None]
